FAERS Safety Report 6207379-9 (Version None)
Quarter: 2009Q2

REPORT INFORMATION
  Report Type: 
  Country: None (occurrence: None)
  Receive Date: 20090528
  Receipt Date: 20090518
  Transmission Date: 20091009
  Serious: Yes (Other)
  Sender: FDA-Public Use
  Company Number: CH-PFIZER INC-2009214977

PATIENT

DRUGS (1)
  1. VFEND [Suspect]

REACTIONS (1)
  - HAEMOLYSIS [None]
